FAERS Safety Report 9975204 (Version 1)
Quarter: 2014Q1

REPORT INFORMATION
  Report Type: Report from Study
  Country: US (occurrence: US)
  Receive Date: 20140306
  Receipt Date: 20140306
  Transmission Date: 20141002
  Serious: No
  Sender: FDA-Public Use
  Company Number: US-ABBVIE-13P-163-1161295-00

PATIENT
  Age: 28 Year
  Sex: Male

DRUGS (5)
  1. LORAZEPAM [Concomitant]
     Indication: ANXIETY
  2. HUMIRA [Suspect]
     Indication: PSORIASIS
     Dates: start: 20130910
  3. FLUOXETINE [Concomitant]
     Indication: DEPRESSION
  4. FLUOXETINE [Concomitant]
     Indication: ANXIETY
  5. CLARITIN [Concomitant]
     Indication: HYPERSENSITIVITY
     Dosage: 10 MG EVERY DAY

REACTIONS (1)
  - Drug dose omission [Not Recovered/Not Resolved]
